FAERS Safety Report 24138967 (Version 1)
Quarter: 2024Q3

REPORT INFORMATION
  Report Type: Spontaneous
  Country: FR (occurrence: FR)
  Receive Date: 20240726
  Receipt Date: 20240726
  Transmission Date: 20241016
  Serious: Yes (Other)
  Sender: CHATTEM
  Company Number: FR-SA-2018SA106385

PATIENT
  Age: 33 Year
  Sex: Female
  Weight: 77 kg

DRUGS (42)
  1. NICODERM CQ [Suspect]
     Active Substance: NICOTINE
     Indication: Ex-tobacco user
     Dosage: DOSE DESCRIPTION : 7 MG, QD
     Route: 065
     Dates: start: 20170224, end: 20170516
  2. POLYETHYLENE GLYCOL 4000 [Suspect]
     Active Substance: POLYETHYLENE GLYCOL 4000
     Indication: Normochromic normocytic anaemia
     Dosage: DOSE DESCRIPTION : 1 DF, QD
     Route: 065
     Dates: start: 20160930, end: 20170405
  3. POLYETHYLENE GLYCOL 4000 [Suspect]
     Active Substance: POLYETHYLENE GLYCOL 4000
     Indication: Constipation
     Dosage: DOSE DESCRIPTION : UNK
     Route: 065
  4. FOLIC ACID [Suspect]
     Active Substance: FOLIC ACID
     Indication: Normochromic normocytic anaemia
     Dosage: DOSE DESCRIPTION : 5 MG, QD
     Route: 065
     Dates: start: 20170313
  5. METFORMIN HYDROCHLORIDE [Suspect]
     Active Substance: METFORMIN HYDROCHLORIDE
     Indication: Type 2 diabetes mellitus
     Dosage: DOSE DESCRIPTION : 1700 MG, QD
     Route: 048
     Dates: start: 20160930, end: 20170224
  6. METFORMIN HYDROCHLORIDE [Suspect]
     Active Substance: METFORMIN HYDROCHLORIDE
     Dosage: DOSE DESCRIPTION : 850 MG, QD
     Route: 048
     Dates: start: 20170224
  7. RAMIPRIL [Suspect]
     Active Substance: RAMIPRIL
     Indication: Hypertension
     Dosage: DOSE DESCRIPTION : 2.5 MG, QD
     Route: 048
     Dates: start: 20160930, end: 20170224
  8. RAMIPRIL [Suspect]
     Active Substance: RAMIPRIL
     Dosage: DOSE DESCRIPTION : 2.5 MG, QD
     Route: 048
     Dates: start: 20170224
  9. RAMIPRIL [Suspect]
     Active Substance: RAMIPRIL
     Route: 048
     Dates: start: 20160930, end: 20170224
  10. POTASSIUM CHLORIDE [Suspect]
     Active Substance: POTASSIUM CHLORIDE
     Indication: Hypokalaemia
     Dosage: DOSE DESCRIPTION : 1200 MG, QD
     Route: 065
     Dates: start: 20170804
  11. POTASSIUM CHLORIDE [Suspect]
     Active Substance: POTASSIUM CHLORIDE
     Dosage: DOSE DESCRIPTION : 3600 MG, QD
     Route: 065
  12. TRAMADOL HYDROCHLORIDE [Suspect]
     Active Substance: TRAMADOL HYDROCHLORIDE
     Indication: Diabetic neuropathy
     Dosage: DOSE DESCRIPTION : 50 MG, QD
     Route: 065
     Dates: start: 20160930, end: 20170306
  13. INSULIN LISPRO [Suspect]
     Active Substance: INSULIN LISPRO
     Indication: Type 2 diabetes mellitus
     Dosage: DOSE DESCRIPTION : 21 UG/M2, QD
     Route: 065
     Dates: start: 20170224, end: 20170224
  14. FUROSEMIDE [Suspect]
     Active Substance: FUROSEMIDE
     Indication: Hypertension
     Dosage: DOSE DESCRIPTION : 40 MG, UNK
     Route: 065
  15. FUROSEMIDE [Suspect]
     Active Substance: FUROSEMIDE
     Dosage: DOSE DESCRIPTION : 50 MG, UNK
     Route: 065
  16. GABAPENTIN [Suspect]
     Active Substance: GABAPENTIN
     Indication: Diabetic neuropathy
     Dosage: DOSE DESCRIPTION : 400 MG, QD
     Route: 048
     Dates: start: 20160930
  17. GABAPENTIN [Suspect]
     Active Substance: GABAPENTIN
     Dosage: DOSE DESCRIPTION : 80 MG, QD
     Route: 048
     Dates: start: 20160930
  18. GABAPENTIN [Suspect]
     Active Substance: GABAPENTIN
     Dosage: DOSE DESCRIPTION : 800 MG, QD
     Route: 048
     Dates: start: 20160930
  19. AMOXICILLIN SODIUM [Suspect]
     Active Substance: AMOXICILLIN SODIUM
     Indication: Product used for unknown indication
     Dosage: DOSE DESCRIPTION : 3 G, QD
     Route: 048
     Dates: start: 20170804, end: 20170811
  20. AMOXICILLIN SODIUM [Suspect]
     Active Substance: AMOXICILLIN SODIUM
     Dosage: DOSE DESCRIPTION : 3 G, QD
     Route: 065
     Dates: start: 20170811
  21. METHYLDOPA [Suspect]
     Active Substance: METHYLDOPA
     Indication: Hypertension
     Dosage: DOSE DESCRIPTION : 15000 MG, QD
     Route: 048
     Dates: start: 20170720
  22. ARIPIPRAZOLE [Suspect]
     Active Substance: ARIPIPRAZOLE
     Indication: Bipolar I disorder
     Dosage: DOSE DESCRIPTION : 10 MG, QD
     Route: 065
     Dates: start: 20160930, end: 20170224
  23. GLICLAZIDE [Suspect]
     Active Substance: GLICLAZIDE
     Indication: Type 2 diabetes mellitus
     Dosage: DOSE DESCRIPTION : 120 MG, QD
     Route: 064
     Dates: start: 20160930, end: 20170224
  24. AMITRIPTYLINE HYDROCHLORIDE [Suspect]
     Active Substance: AMITRIPTYLINE HYDROCHLORIDE
     Indication: Diabetic neuropathy
     Dosage: DOSE DESCRIPTION : 2 DF, QD
     Route: 065
     Dates: start: 20160930
  25. AMITRIPTYLINE HYDROCHLORIDE [Suspect]
     Active Substance: AMITRIPTYLINE HYDROCHLORIDE
     Indication: Product used for unknown indication
     Dosage: DOSE DESCRIPTION : 2 DF, QD
     Route: 065
  26. PROPRANOLOL HYDROCHLORIDE [Suspect]
     Active Substance: PROPRANOLOL HYDROCHLORIDE
     Indication: Hypertension
     Dosage: DOSE DESCRIPTION : UNK
     Route: 065
     Dates: start: 20170516
  27. PROPRANOLOL HYDROCHLORIDE [Suspect]
     Active Substance: PROPRANOLOL HYDROCHLORIDE
     Dosage: DOSE DESCRIPTION : 80 MG
     Route: 065
     Dates: start: 20170516
  28. FERROUS SULFATE [Suspect]
     Active Substance: FERROUS SULFATE
     Indication: Normochromic normocytic anaemia
     Dosage: DOSE DESCRIPTION : 1 DF, QD
     Route: 065
     Dates: start: 20170313
  29. LINEZOLID [Suspect]
     Active Substance: LINEZOLID
     Indication: Product used for unknown indication
     Dosage: 50 MG, UNK
     Route: 065
     Dates: start: 20170313, end: 20170405
  30. LABETALOL HYDROCHLORIDE [Suspect]
     Active Substance: LABETALOL\LABETALOL HYDROCHLORIDE
     Indication: Hypertension
     Dosage: DOSE DESCRIPTION : 80 MG, QD
     Route: 065
     Dates: start: 20170516
  31. LEUCOVORIN [Suspect]
     Active Substance: LEUCOVORIN\LEUCOVORIN CALCIUM
     Indication: Normochromic normocytic anaemia
     Dosage: DOSE DESCRIPTION : 5 MG, QD
     Route: 065
     Dates: start: 20170313
  32. CHLORPROMAZINE [Suspect]
     Active Substance: CHLORPROMAZINE
     Indication: Bipolar I disorder
     Dosage: DOSE DESCRIPTION : 25 MG, QD
     Route: 065
     Dates: start: 20170720
  33. CHLORPROMAZINE [Suspect]
     Active Substance: CHLORPROMAZINE
     Dosage: DOSE DESCRIPTION : 25 MG, QD
     Route: 065
     Dates: start: 20170720
  34. CHLORPROMAZINE [Suspect]
     Active Substance: CHLORPROMAZINE
     Dosage: DOSE DESCRIPTION : 0.5 DF, UNK
     Route: 065
  35. INSULIN GLARGINE [Suspect]
     Active Substance: INSULIN GLARGINE
     Indication: Type 2 diabetes mellitus
     Dosage: DOSE DESCRIPTION : 20 MG, QD
     Route: 048
     Dates: start: 20170224
  36. FERROUS SULFATE [Suspect]
     Active Substance: FERROUS SULFATE
     Indication: Normochromic normocytic anaemia
     Dosage: DOSE DESCRIPTION : 1 DF, QD
     Route: 065
     Dates: start: 20170313
  37. NICARDIPINE HYDROCHLORIDE [Suspect]
     Active Substance: NICARDIPINE HYDROCHLORIDE
     Indication: Hypertension
     Dosage: DOSE DESCRIPTION : 50 MG, QD
     Route: 065
     Dates: start: 20170405
  38. NICARDIPINE HYDROCHLORIDE [Suspect]
     Active Substance: NICARDIPINE HYDROCHLORIDE
     Dosage: 1 DF, UNK
     Route: 065
     Dates: start: 20170313, end: 20180415
  39. NICARDIPINE HYDROCHLORIDE [Suspect]
     Active Substance: NICARDIPINE HYDROCHLORIDE
     Dosage: 50 MG, UNK
     Route: 065
  40. INSULIN NOS [Suspect]
     Active Substance: INSULIN NOS
     Indication: Type 2 diabetes mellitus
     Dosage: DOSE DESCRIPTION : UNK UNK,UNK
     Route: 065
     Dates: start: 20161230, end: 20171224
  41. INSULIN NOS [Suspect]
     Active Substance: INSULIN NOS
     Dosage: 21 ?G/M2, ONCE DAILY (QD)
     Route: 065
  42. INSULIN DETEMIR [Suspect]
     Active Substance: INSULIN DETEMIR
     Indication: Type 2 diabetes mellitus
     Dosage: DOSE DESCRIPTION : 10 IU, QD
     Route: 065
     Dates: start: 20160930, end: 20170224

REACTIONS (4)
  - Premature delivery [Unknown]
  - Pregnancy [Unknown]
  - Maternal exposure during pregnancy [Unknown]
  - Foetal exposure during pregnancy [Unknown]

NARRATIVE: CASE EVENT DATE: 20170914
